FAERS Safety Report 24188892 (Version 1)
Quarter: 2024Q3

REPORT INFORMATION
  Report Type: Spontaneous
  Country: US (occurrence: None)
  Receive Date: 20240806
  Receipt Date: 20240806
  Transmission Date: 20241016
  Serious: No
  Sender: Public
  Company Number: None

PATIENT
  Age: 63 Year
  Sex: Male

DRUGS (1)
  1. ADALIMUMAB-ADAZ [Suspect]
     Active Substance: ADALIMUMAB-ADAZ
     Dosage: OTHER FREQUENCY : Q14D;?
     Route: 058
     Dates: start: 20240710

REACTIONS (4)
  - Influenza like illness [None]
  - Pain [None]
  - Pruritus [None]
  - Chromaturia [None]
